FAERS Safety Report 11887017 (Version 1)
Quarter: 2016Q1

REPORT INFORMATION
  Report Type: Spontaneous
  Country: JP (occurrence: JP)
  Receive Date: 20160104
  Receipt Date: 20160104
  Transmission Date: 20160526
  Serious: Yes (Hospitalization, Other)
  Sender: FDA-Public Use
  Company Number: JP-BRISTOL-MYERS SQUIBB COMPANY-11525045

PATIENT
  Age: 27 Year
  Sex: Female
  Weight: 54 kg

DRUGS (4)
  1. ZERIT [Suspect]
     Active Substance: STAVUDINE
     Indication: HIV INFECTION
     Dosage: 40 MG, BID
     Route: 048
     Dates: start: 19990812, end: 20000324
  2. VIRACEPT [Suspect]
     Active Substance: NELFINAVIR MESYLATE
     Indication: HIV INFECTION
     Dosage: 750 MG, TID
     Route: 048
     Dates: start: 19990812, end: 20000324
  3. EPIVIR [Suspect]
     Active Substance: LAMIVUDINE
     Indication: HIV INFECTION
     Dosage: 150 MG, BID
     Route: 048
     Dates: start: 19990812, end: 20000324
  4. AMOXICILLIN TRIHYDRATE [Concomitant]
     Active Substance: AMOXICILLIN
     Indication: SYPHILIS
     Dosage: 250 MG, TID
     Route: 048
     Dates: start: 19990812, end: 19990927

REACTIONS (5)
  - Premature delivery [Unknown]
  - Live birth [Unknown]
  - Caesarean section [Unknown]
  - Acute kidney injury [Recovered/Resolved]
  - Pregnancy [Recovered/Resolved]

NARRATIVE: CASE EVENT DATE: 1999
